FAERS Safety Report 6241996-5 (Version None)
Quarter: 2009Q2

REPORT INFORMATION
  Report Type: 
  Country: None (occurrence: None)
  Receive Date: 20090622
  Receipt Date: 20090610
  Transmission Date: 20091009
  Serious: Yes (Other)
  Sender: FDA-Public Use
  Company Number: 09US001834

PATIENT
  Age: 3 Month
  Sex: Female

DRUGS (1)
  1. ACETAMINOPHEN INFANT [Suspect]
     Dosage: ORAL
     Route: 048
     Dates: start: 20090429, end: 20090506

REACTIONS (4)
  - ABNORMAL BEHAVIOUR [None]
  - DYSPNOEA [None]
  - EXPIRED DRUG ADMINISTERED [None]
  - VOMITING [None]
